FAERS Safety Report 13323818 (Version 2)
Quarter: 2017Q2

REPORT INFORMATION
  Report Type: Spontaneous
  Country: US (occurrence: US)
  Receive Date: 20170310
  Receipt Date: 20170412
  Transmission Date: 20170830
  Serious: Yes (Other)
  Sender: FDA-Public Use
  Company Number: US-ELI_LILLY_AND_COMPANY-US201607008601

PATIENT
  Sex: Female

DRUGS (3)
  1. CYMBALTA [Suspect]
     Active Substance: DULOXETINE HYDROCHLORIDE
     Dosage: 30 MG, BID
     Route: 065
  2. CYMBALTA [Suspect]
     Active Substance: DULOXETINE HYDROCHLORIDE
     Indication: PRODUCT USED FOR UNKNOWN INDICATION
     Dosage: 30 MG, AT NIGHT
     Route: 065
  3. CYMBALTA [Suspect]
     Active Substance: DULOXETINE HYDROCHLORIDE
     Dosage: UNK, UNKNOWN
     Route: 065
     Dates: start: 20131025

REACTIONS (29)
  - Affect lability [Unknown]
  - Hot flush [Unknown]
  - Visual impairment [Unknown]
  - Hypomania [Unknown]
  - Hyperhidrosis [Unknown]
  - Lethargy [Unknown]
  - Dysphoria [Unknown]
  - Nightmare [Unknown]
  - Vertigo [Unknown]
  - Nausea [Unknown]
  - Fatigue [Unknown]
  - Dizziness [Unknown]
  - Tinnitus [Unknown]
  - Chills [Unknown]
  - Headache [Unknown]
  - Tremor [Unknown]
  - Sensory disturbance [Unknown]
  - Vision blurred [Unknown]
  - Paraesthesia [Unknown]
  - Irritability [Unknown]
  - Suicidal ideation [Unknown]
  - Vomiting [Unknown]
  - Agitation [Unknown]
  - Confusional state [Unknown]
  - Photophobia [Unknown]
  - Drug withdrawal syndrome [Unknown]
  - Diarrhoea [Unknown]
  - Anxiety [Unknown]
  - Insomnia [Unknown]
